FAERS Safety Report 12750239 (Version 2)
Quarter: 2016Q3

REPORT INFORMATION
  Report Type: Report from Study
  Country: CA (occurrence: CA)
  Receive Date: 20160916
  Receipt Date: 20160923
  Transmission Date: 20161109
  Serious: Yes (Hospitalization)
  Sender: FDA-Public Use
  Company Number: CA-HLSUS-2016-CA-000412

PATIENT
  Age: 32 Year
  Sex: Male
  Weight: 59.6 kg

DRUGS (1)
  1. CLOZARIL [Suspect]
     Active Substance: CLOZAPINE
     Indication: SCHIZOPHRENIA
     Dosage: 50 MG OD
     Route: 048
     Dates: start: 20160212, end: 20160830

REACTIONS (4)
  - Dysphemia [Unknown]
  - Fatigue [Unknown]
  - Sedation [Unknown]
  - Testis cancer [Unknown]

NARRATIVE: CASE EVENT DATE: 20160901
